FAERS Safety Report 6094025-0 (Version None)
Quarter: 2009Q1

REPORT INFORMATION
  Report Type: 
  Country: None (occurrence: None)
  Receive Date: 20090226
  Receipt Date: 20090218
  Transmission Date: 20090719
  Serious: Yes (Death)
  Sender: FDA-Public Use
  Company Number: US-GILEAD-2009-0020394

PATIENT
  Sex: Female
  Weight: 99.88 kg

DRUGS (10)
  1. LETAIRIS [Suspect]
     Indication: PULMONARY ARTERIAL HYPERTENSION
     Route: 048
     Dates: start: 20090121
  2. COUMADIN [Concomitant]
  3. LASIX [Concomitant]
  4. DIOVAN [Concomitant]
  5. POTASSIUM CHLORIDE [Concomitant]
  6. MULTI-VITAMIN [Concomitant]
  7. DOCUSATE SODIUM [Concomitant]
  8. CALCIUM ANTACID [Concomitant]
  9. VITAMIN B-12 [Concomitant]
  10. FISH OIL [Concomitant]

REACTIONS (4)
  - ASTHENIA [None]
  - DEATH [None]
  - DYSPNOEA [None]
  - OEDEMA PERIPHERAL [None]
